FAERS Safety Report 22070332 (Version 2)
Quarter: 2023Q2

REPORT INFORMATION
  Report Type: Spontaneous
  Country: US (occurrence: US)
  Receive Date: 20230307
  Receipt Date: 20230410
  Transmission Date: 20230722
  Serious: Yes (Other)
  Sender: FDA-Public Use
  Company Number: US-PFIZER INC-202300095074

PATIENT
  Age: 34 Year
  Sex: Female
  Weight: 70.295 kg

DRUGS (1)
  1. PAXLOVID [Suspect]
     Active Substance: NIRMATRELVIR\RITONAVIR
     Indication: COVID-19 treatment
     Dosage: UNK, 2X/DAY (TWICE DAILY)
     Route: 048
     Dates: start: 20230304, end: 20230305

REACTIONS (6)
  - Hallucination [Recovered/Resolved]
  - Initial insomnia [Recovered/Resolved]
  - Paranoia [Recovered/Resolved]
  - Tachyphrenia [Recovered/Resolved]
  - Delusion [Unknown]
  - Memory impairment [Unknown]

NARRATIVE: CASE EVENT DATE: 20230304
